FAERS Safety Report 11728043 (Version 2)
Quarter: 2016Q1

REPORT INFORMATION
  Report Type: Spontaneous
  Country: US (occurrence: None)
  Receive Date: 20151110
  Receipt Date: 20160113
  Transmission Date: 20160525
  Serious: Yes (Other)
  Sender: FDA-Public Use
  Company Number: US-ALSI-201500286

PATIENT
  Age: 75 Year
  Sex: Female

DRUGS (1)
  1. OXYGEN USP OXYGEN [Suspect]
     Active Substance: OXYGEN
     Indication: DYSPNOEA
     Dosage: RESPIRATORY
     Route: 055

REACTIONS (5)
  - Product quality issue [None]
  - Device occlusion [None]
  - Underdose [None]
  - Device malfunction [None]
  - Respiratory distress [None]

NARRATIVE: CASE EVENT DATE: 20151105
